FAERS Safety Report 8370130-0 (Version None)
Quarter: 2012Q2

REPORT INFORMATION
  Report Type: 
  Country: None (occurrence: None)
  Receive Date: 20120518
  Receipt Date: 20120515
  Transmission Date: 20120825
  Serious: Yes (Other)
  Sender: FDA-Public Use
  Company Number: AU-JNJFOC-20120513555

PATIENT
  Sex: Female

DRUGS (13)
  1. ALLOPURINOL [Concomitant]
  2. SIMPONI [Suspect]
     Indication: PSORIATIC ARTHROPATHY
     Route: 058
     Dates: start: 20110927, end: 20120416
  3. FOLIC ACID [Concomitant]
  4. VENTOLIN [Concomitant]
  5. PRAVACHOL [Concomitant]
  6. SYMBICORT [Concomitant]
  7. METHOTREXATE [Concomitant]
  8. ASPIRIN [Concomitant]
  9. PANADOL OSTEO [Concomitant]
  10. CREON [Concomitant]
  11. KARVEA [Concomitant]
  12. METFORMIN HCL [Concomitant]
  13. NEXIUM [Concomitant]

REACTIONS (3)
  - PANCREATITIS [None]
  - ABDOMINAL PAIN [None]
  - APHAGIA [None]
